FAERS Safety Report 25830979 (Version 1)
Quarter: 2025Q3

REPORT INFORMATION
  Report Type: Spontaneous
  Country: US (occurrence: None)
  Receive Date: 20250919
  Receipt Date: 20250919
  Transmission Date: 20251021
  Serious: No
  Sender: FDA-CTU
  Company Number: None

PATIENT
  Age: 45 Year
  Sex: Male

DRUGS (1)
  1. VTAMA [Suspect]
     Active Substance: TAPINAROF
     Indication: Psoriasis
     Dosage: DOSE: APPLY A THEN LAYER TO AFFECTED AREAS EVERY NIGHT AT BEDTIME
     Route: 061
     Dates: start: 202404

REACTIONS (1)
  - Knee operation [None]
